FAERS Safety Report 10612181 (Version 1)
Quarter: 2014Q4

REPORT INFORMATION
  Report Type: Spontaneous
  Country: US (occurrence: US)
  Receive Date: 20141127
  Receipt Date: 20141127
  Transmission Date: 20150529
  Serious: Yes (Death)
  Sender: FDA-Public Use
  Company Number: US-CIPLA LTD.-2014US02149

PATIENT

DRUGS (7)
  1. RAMUCIRUMAB [Suspect]
     Active Substance: RAMUCIRUMAB
     Indication: NON-SMALL CELL LUNG CANCER STAGE IV
     Dosage: 10 MG/KG OVER 60 MINUTES ON DAY 1 OF EACH CYCLE
     Route: 042
  2. PEMETREXED [Suspect]
     Active Substance: PEMETREXED
     Indication: NON-SMALL CELL LUNG CANCER STAGE IV
     Dosage: 500 MG/M2 , OVER 10 TO 15 MINUTES ON DAY 1 OF EACH CYCLE
     Route: 042
  3. CARBOPLATIN. [Suspect]
     Active Substance: CARBOPLATIN
     Indication: NON-SMALL CELL LUNG CANCER STAGE IV
     Dosage: AUC OF 6 OVER 30 MIN ON D1 OF EACH CYCLE APPROXIMATELY 30 MIN AFTER THE END OF THE PEMETREXED
  4. CISPLATIN. [Suspect]
     Active Substance: CISPLATIN
     Indication: NON-SMALL CELL LUNG CANCER STAGE IV
     Dosage: 75 MG/M2 OVER 120 MINUTES ON DAY 1 OF EACH CYCLE
  5. VITAMIN B12 [Concomitant]
     Active Substance: CYANOCOBALAMIN
  6. FOLIC ACID. [Concomitant]
     Active Substance: FOLIC ACID
  7. DEXAMETHASONE. [Concomitant]
     Active Substance: DEXAMETHASONE

REACTIONS (1)
  - Sudden death [Fatal]
